FAERS Safety Report 4803763-6 (Version None)
Quarter: 2005Q4

REPORT INFORMATION
  Report Type: 
  Country: None (occurrence: None)
  Receive Date: 20051014
  Receipt Date: 20051005
  Transmission Date: 20060501
  Serious: Yes (Other)
  Sender: FDA-Public Use
  Company Number: 05GER0195

PATIENT

DRUGS (1)
  1. AGGRASTAT [Suspect]
     Indication: ANGIOPLASTY
     Dates: start: 20051005

REACTIONS (1)
  - CARDIAC TAMPONADE [None]
